FAERS Safety Report 8049361-5 (Version None)
Quarter: 2012Q1

REPORT INFORMATION
  Report Type: 
  Country: None (occurrence: None)
  Receive Date: 20120117
  Receipt Date: 20120113
  Transmission Date: 20120608
  Serious: Yes (Other)
  Sender: FDA-Public Use
  Company Number: IT-ROCHE-1030108

PATIENT
  Sex: Female

DRUGS (5)
  1. HERCEPTIN [Suspect]
     Indication: BREAST CANCER
     Route: 042
     Dates: start: 20111019
  2. HERCEPTIN [Suspect]
     Route: 042
     Dates: start: 20111019
  3. ZOMETA [Suspect]
     Indication: BREAST CANCER
     Route: 042
     Dates: start: 20111019
  4. VINORELBINE [Suspect]
     Indication: PRODUCT USED FOR UNKNOWN INDICATION
     Route: 042
     Dates: start: 20111019
  5. OLMESARTAN MEDOXOMIL [Concomitant]

REACTIONS (2)
  - HYPERTRANSAMINASAEMIA [None]
  - NEUTROPENIA [None]
